FAERS Safety Report 8021304 (Version 2)
Quarter: 2014Q1

REPORT INFORMATION
  Report Type: Spontaneous
  Country: US (occurrence: US)
  Receive Date: 20110705
  Receipt Date: 20140320
  Transmission Date: 20141002
  Serious: Yes (Other)
  Sender: FDA-Public Use
  Company Number: US-BAYER-2011-054930

PATIENT
  Age: 34 Year
  Sex: Female

DRUGS (1)
  1. MIRENA [Suspect]
     Indication: OVARIAN CYST
     Dosage: UNK
     Dates: start: 20110623

REACTIONS (5)
  - Uterine perforation [None]
  - Abdominal pain lower [None]
  - Post procedural haemorrhage [None]
  - Device deployment issue [Recovered/Resolved]
  - Complication of device insertion [None]
